FAERS Safety Report 7020673-7 (Version None)
Quarter: 2010Q3

REPORT INFORMATION
  Report Type: 
  Country: None (occurrence: None)
  Receive Date: 20100929
  Receipt Date: 20100916
  Transmission Date: 20110219
  Serious: Yes (Other)
  Sender: FDA-Public Use
  Company Number: PHHY2010NL61904

PATIENT
  Sex: Female

DRUGS (2)
  1. ZOMETA [Suspect]
     Dosage: 4 MG/ 5 ML, EVERY 4 WEEK
     Route: 042
     Dates: start: 20100331
  2. ZOMETA [Suspect]
     Dosage: 4 MG/ 5 ML, EVERY 4 WEEK
     Route: 042
     Dates: start: 20100816

REACTIONS (4)
  - ARTIFICIAL CROWN PROCEDURE [None]
  - OPEN WOUND [None]
  - PAIN IN JAW [None]
  - TOOTH EXTRACTION [None]
